FAERS Safety Report 4444201-5 (Version None)
Quarter: 2004Q3

REPORT INFORMATION
  Report Type: 
  Country: None (occurrence: None)
  Receive Date: 20040812
  Receipt Date: 20040315
  Transmission Date: 20050211
  Serious: Yes (Hospitalization, Other)
  Sender: FDA-Public Use
  Company Number: USA040361949

PATIENT
  Sex: Male

DRUGS (6)
  1. HUMULIN R [Suspect]
     Indication: DIABETES MELLITUS
     Dates: start: 19900101
  2. HUMULIN N [Suspect]
     Indication: DIABETES MELLITUS
     Dosage: 30 U/1 DAY
     Dates: start: 19820101
  3. LENTE ILETIN (BEEF-PORK) INSULIN ZINC [Suspect]
     Indication: DIABETES MELLITUS
     Dates: start: 19550101, end: 19820101
  4. INSULIN [Suspect]
     Indication: DIABETES MELLITUS
     Dates: end: 19820101
  5. CAPTOPRIL [Concomitant]
  6. ZOCOR [Concomitant]

REACTIONS (5)
  - BLOOD GLUCOSE FLUCTUATION [None]
  - CORONARY ARTERIAL STENT INSERTION [None]
  - MYOCARDIAL INFARCTION [None]
  - RETINOPATHY [None]
  - VISUAL ACUITY REDUCED [None]
